FAERS Safety Report 10175893 (Version 1)
Quarter: 2014Q2

REPORT INFORMATION
  Report Type: Spontaneous
  Country: FR (occurrence: FR)
  Receive Date: 20140516
  Receipt Date: 20140516
  Transmission Date: 20141212
  Serious: Yes (Hospitalization, Other)
  Sender: FDA-Public Use
  Company Number: FR-SA-2014SA058136

PATIENT
  Age: 76 Year
  Sex: Male

DRUGS (5)
  1. KARDEGIC [Suspect]
     Indication: ISCHAEMIC CARDIOMYOPATHY
     Route: 048
     Dates: start: 20011122
  2. PLAVIX [Suspect]
     Indication: ISCHAEMIC CARDIOMYOPATHY
     Route: 048
     Dates: start: 20021111
  3. ANTIHYPERTENSIVES [Suspect]
     Indication: CARDIAC FAILURE
     Route: 065
     Dates: start: 20100907, end: 20120412
  4. PANTOPRAZOLE [Concomitant]
     Dates: start: 200210
  5. LEVOSULPIRIDE [Concomitant]
     Dates: start: 20020611

REACTIONS (2)
  - Cardiac failure acute [Not Recovered/Not Resolved]
  - Anaemia [Not Recovered/Not Resolved]
